FAERS Safety Report 19547891 (Version 1)
Quarter: 2021Q3

REPORT INFORMATION
  Report Type: Spontaneous
  Country: US (occurrence: US)
  Receive Date: 20210714
  Receipt Date: 20210714
  Transmission Date: 20211014
  Serious: Yes (Hospitalization)
  Sender: FDA-Public Use
  Company Number: None

PATIENT
  Age: 65 Year
  Sex: Female

DRUGS (9)
  1. ENBREL [Suspect]
     Active Substance: ETANERCEPT
     Dosage: ?          OTHER FREQUENCY:ONCE A WEEK;?
     Route: 058
     Dates: start: 20210128
  2. XARELTO [Concomitant]
     Active Substance: RIVAROXABAN
  3. TRULANCE [Concomitant]
     Active Substance: PLECANATIDE
  4. ZOLPIDEM [Concomitant]
     Active Substance: ZOLPIDEM TARTRATE
  5. METOPROLOL. [Concomitant]
     Active Substance: METOPROLOL
  6. FLECAINIDE [Concomitant]
     Active Substance: FLECAINIDE
  7. IBUPROFEN. [Concomitant]
     Active Substance: IBUPROFEN
  8. SERTRALINE [Concomitant]
     Active Substance: SERTRALINE HYDROCHLORIDE
  9. MELATONIN [Concomitant]
     Active Substance: MELATONIN

REACTIONS (1)
  - Surgery [None]

NARRATIVE: CASE EVENT DATE: 20210711
